FAERS Safety Report 11563882 (Version 1)
Quarter: 2015Q3

REPORT INFORMATION
  Report Type: Spontaneous
  Country: US (occurrence: US)
  Receive Date: 20150928
  Receipt Date: 20150928
  Transmission Date: 20151125
  Serious: No
  Sender: FDA-Public Use
  Company Number: GXBR2015US002114

PATIENT
  Sex: Female
  Weight: 70.3 kg

DRUGS (2)
  1. BYSTOLIC [Suspect]
     Active Substance: NEBIVOLOL HYDROCHLORIDE
     Indication: PRODUCT USED FOR UNKNOWN INDICATION
     Dosage: UNK DF, UNK
     Route: 065
  2. LISINOPRIL TABLETS, USP [Suspect]
     Active Substance: LISINOPRIL
     Indication: HYPERTENSION
     Dosage: A WHOLE OR A HALF TABLET, QD
     Route: 048
     Dates: start: 20150629

REACTIONS (3)
  - Chest discomfort [Recovered/Resolved]
  - Dizziness [Recovered/Resolved]
  - Dyspnoea [Recovered/Resolved]
